FAERS Safety Report 9470728 (Version 1)
Quarter: 2013Q3

REPORT INFORMATION
  Report Type: Spontaneous
  Country: US (occurrence: US)
  Receive Date: 20130822
  Receipt Date: 20130822
  Transmission Date: 20140515
  Serious: No
  Sender: FDA-Public Use
  Company Number: US-SANOFI-AVENTIS-2013SA027112

PATIENT
  Sex: Female

DRUGS (4)
  1. ZALTRAP [Suspect]
     Indication: PRODUCT USED FOR UNKNOWN INDICATION
     Route: 041
  2. 5 FU [Suspect]
     Indication: PRODUCT USED FOR UNKNOWN INDICATION
     Route: 042
  3. FOLINIC ACID [Suspect]
     Indication: PRODUCT USED FOR UNKNOWN INDICATION
     Route: 042
  4. IRINOTECAN [Suspect]
     Indication: PRODUCT USED FOR UNKNOWN INDICATION
     Route: 042

REACTIONS (4)
  - Adverse event [Unknown]
  - Proteinuria [Unknown]
  - Hypertension [Unknown]
  - Diarrhoea [Unknown]
